FAERS Safety Report 6964075-8 (Version None)
Quarter: 2010Q3

REPORT INFORMATION
  Report Type: 
  Country: None (occurrence: None)
  Receive Date: 20100831
  Receipt Date: 20100816
  Transmission Date: 20110219
  Serious: Yes (Hospitalization)
  Sender: FDA-Public Use
  Company Number: TR-003442

PATIENT
  Age: 32 Year
  Sex: Female

DRUGS (4)
  1. CHORIONIC GONADTROPIN [Suspect]
     Indication: INFERTILITY
     Dosage: 10000 IU1X; INTRAMUSCULAR
     Route: 030
  2. LUCRIN (LEUPRORELIN ACETATE) [Concomitant]
  3. GONAL-F [Concomitant]
  4. CRINONE [Concomitant]

REACTIONS (4)
  - ASCITES [None]
  - JUGULAR VEIN THROMBOSIS [None]
  - OVARIAN HYPERSTIMULATION SYNDROME [None]
  - SUBCLAVIAN VEIN THROMBOSIS [None]
